FAERS Safety Report 9202610 (Version 1)
Quarter: 2013Q2

REPORT INFORMATION
  Report Type: Spontaneous
  Country: US (occurrence: US)
  Receive Date: 20130401
  Receipt Date: 20130401
  Transmission Date: 20140414
  Serious: No
  Sender: FDA-Public Use
  Company Number: US-009507513-1303USA012860

PATIENT
  Sex: 0

DRUGS (2)
  1. ZEMURON [Suspect]
     Indication: PARALYSIS
     Dosage: UNK
  2. ROCURONIUM BROMIDE [Suspect]
     Indication: PARALYSIS

REACTIONS (1)
  - Drug ineffective [Unknown]
